FAERS Safety Report 9647149 (Version 1)
Quarter: 2013Q4

REPORT INFORMATION
  Report Type: Spontaneous
  Country: US (occurrence: US)
  Receive Date: 20131027
  Receipt Date: 20131027
  Transmission Date: 20140711
  Serious: Yes (Other)
  Sender: FDA-Public Use
  Company Number: US-NAPPMUNDI-USA-2013-0105672

PATIENT
  Sex: Male

DRUGS (3)
  1. OXYCODONE HYDROCHLORIDE (SIMILAR TO NDA 22-272) [Suspect]
     Indication: ACCIDENTAL EXPOSURE TO PRODUCT
     Route: 065
  2. HYDROCODONE [Suspect]
     Indication: ACCIDENTAL EXPOSURE TO PRODUCT
  3. ALCOHOL [Suspect]
     Indication: DRUG ABUSE

REACTIONS (2)
  - Accidental exposure to product [Unknown]
  - Memory impairment [Unknown]
